FAERS Safety Report 5919989-4 (Version None)
Quarter: 2008Q4

REPORT INFORMATION
  Report Type: 
  Country: None (occurrence: None)
  Receive Date: 20081014
  Receipt Date: 20081008
  Transmission Date: 20090506
  Serious: Yes (Other)
  Sender: FDA-Public Use
  Company Number: 1000001066

PATIENT
  Age: 78 Year
  Sex: Female
  Weight: 72.5755 kg

DRUGS (6)
  1. MEMANTINE HCL [Suspect]
     Indication: DEMENTIA ALZHEIMER'S TYPE
     Dosage: 20 MG (20 MG, 1 IN 1 D); ORAL
     Route: 048
     Dates: start: 20080623
  2. PANTOPRAZOLE SODIUM [Concomitant]
  3. HYDROCHLOROTHIAZIDE [Concomitant]
  4. TAMOXIFEN CITRATE [Concomitant]
  5. AMLODIPINE [Concomitant]
  6. ARICEPT [Concomitant]

REACTIONS (3)
  - ERYTHEMA [None]
  - FALL [None]
  - PELVIC FRACTURE [None]
